FAERS Safety Report 6357517-2 (Version None)
Quarter: 2009Q3

REPORT INFORMATION
  Report Type: 
  Country: None (occurrence: None)
  Receive Date: 20090916
  Receipt Date: 20070425
  Transmission Date: 20100115
  Serious: Yes (Hospitalization, Other)
  Sender: FDA-Public Use
  Company Number: US-ASTRAZENECA-2006UW10733

PATIENT
  Age: 9670 Day
  Sex: Female
  Weight: 92.1 kg

DRUGS (12)
  1. SEROQUEL [Suspect]
     Indication: INSOMNIA
     Dosage: 25-200 MG
     Route: 048
     Dates: start: 20030328, end: 20051201
  2. SEROQUEL [Suspect]
     Indication: BIPOLAR DISORDER
     Dosage: 25-200 MG
     Route: 048
     Dates: start: 20030328, end: 20051201
  3. SEROQUEL [Suspect]
     Route: 048
     Dates: start: 20030401, end: 20030701
  4. SEROQUEL [Suspect]
     Route: 048
     Dates: start: 20030401, end: 20030701
  5. SEROQUEL [Suspect]
     Dosage: 25 - 200 MG
     Route: 048
     Dates: start: 20040601, end: 20051201
  6. SEROQUEL [Suspect]
     Dosage: 25 - 200 MG
     Route: 048
     Dates: start: 20040601, end: 20051201
  7. SEROQUEL [Suspect]
     Route: 048
     Dates: start: 20050601, end: 20051218
  8. SEROQUEL [Suspect]
     Route: 048
     Dates: start: 20050601, end: 20051218
  9. RISPERDAL [Suspect]
     Dosage: 0.5 MG
     Dates: start: 20050201, end: 20050601
  10. WELLBUTRIN [Concomitant]
     Indication: CONVULSION
     Route: 048
     Dates: start: 20030106
  11. TRAZODONE [Concomitant]
     Route: 048
     Dates: start: 20030106
  12. CELEXA [Concomitant]
     Route: 048
     Dates: start: 20030106

REACTIONS (2)
  - NEUROLEPTIC MALIGNANT SYNDROME [None]
  - RHABDOMYOLYSIS [None]
